FAERS Safety Report 6332028-9 (Version None)
Quarter: 2009Q3

REPORT INFORMATION
  Report Type: 
  Country: None (occurrence: None)
  Receive Date: 20090828
  Receipt Date: 20070807
  Transmission Date: 20100115
  Serious: Yes (Hospitalization)
  Sender: FDA-Public Use
  Company Number: US-ASTRAZENECA-2006UW24146

PATIENT
  Age: 58 Year
  Sex: Female
  Weight: 105.2 kg

DRUGS (11)
  1. SEROQUEL [Suspect]
     Dosage: 25 TO 200 MG
     Route: 048
     Dates: start: 20010219
  2. ABILIFY [Concomitant]
     Dosage: 20 TO 40 MG
     Dates: start: 20040528
  3. ABILIFY [Concomitant]
  4. HALDOL [Concomitant]
  5. NAVANE [Concomitant]
  6. RISPERDAL [Concomitant]
     Dates: start: 19991103
  7. THORAZINE [Concomitant]
  8. ZYPREXA [Concomitant]
     Dosage: 10 MG TWO AT NIGHT
     Dates: start: 19991103
  9. PROZAC [Concomitant]
     Dates: start: 20001002
  10. LITHIUM CARBONATE [Concomitant]
     Dates: start: 20040528
  11. TRAZODONE HCL [Concomitant]
     Dates: start: 20000831

REACTIONS (5)
  - DIABETES MELLITUS [None]
  - SCHIZOAFFECTIVE DISORDER [None]
  - SCHIZOPHRENIA [None]
  - SCHIZOPHRENIA, PARANOID TYPE [None]
  - TYPE 2 DIABETES MELLITUS [None]
